FAERS Safety Report 6932332-7 (Version None)
Quarter: 2010Q3

REPORT INFORMATION
  Report Type: 
  Country: None (occurrence: None)
  Receive Date: 20100813
  Receipt Date: 20100427
  Transmission Date: 20110219
  Serious: Yes (Other)
  Sender: FDA-Public Use
  Company Number: 1000013438

PATIENT
  Sex: Female

DRUGS (3)
  1. SAVELLA [Suspect]
     Dosage: SEE IMAGE
     Route: 048
  2. WELLBUTRIN [Concomitant]
  3. EFFEXOR [Concomitant]

REACTIONS (1)
  - SEROTONIN SYNDROME [None]
